FAERS Safety Report 7980760-3 (Version None)
Quarter: 2011Q4

REPORT INFORMATION
  Report Type: 
  Country: None (occurrence: None)
  Receive Date: 20111214
  Receipt Date: 20111201
  Transmission Date: 20120403
  Serious: Yes (Other)
  Sender: FDA-Public Use
  Company Number: US-ELI_LILLY_AND_COMPANY-US201110007867

PATIENT
  Sex: Male
  Weight: 138.78 kg

DRUGS (10)
  1. OLANZAPINE [Suspect]
     Dosage: 300 MG, 2/W
     Route: 030
     Dates: start: 20111012
  2. OLANZAPINE [Suspect]
     Dosage: 300 MG, 2/W
     Route: 030
     Dates: start: 20110928
  3. OLANZAPINE [Suspect]
     Dosage: 210 MG, 2/W
     Route: 030
     Dates: start: 20111026
  4. HALDOL [Concomitant]
     Dosage: 15 MG, EACH EVENING
     Route: 065
  5. OLANZAPINE [Suspect]
     Dosage: 300 MG, 2/W
     Route: 030
     Dates: start: 20110816
  6. HALDOL [Concomitant]
     Dosage: 150 MG, 2/W
     Route: 065
  7. OLANZAPINE [Suspect]
     Dosage: 300 MG, 2/W
     Route: 030
     Dates: start: 20110830
  8. OLANZAPINE [Suspect]
     Dosage: 300 MG, 2/W
     Route: 030
     Dates: start: 20110802
  9. OLANZAPINE [Suspect]
     Dosage: 300 MG, 2/W
     Route: 030
     Dates: start: 20110411
  10. OLANZAPINE [Suspect]
     Dosage: 300 MG, 2/W
     Route: 030
     Dates: start: 20110913

REACTIONS (7)
  - CONFUSIONAL STATE [None]
  - DISORIENTATION [None]
  - DEPRESSED LEVEL OF CONSCIOUSNESS [None]
  - ASTHENIA [None]
  - SENSORY DISTURBANCE [None]
  - ATAXIA [None]
  - SEDATION [None]
